FAERS Safety Report 7085026-4 (Version None)
Quarter: 2010Q4

REPORT INFORMATION
  Report Type: 
  Country: None (occurrence: None)
  Receive Date: 20101105
  Receipt Date: 20101025
  Transmission Date: 20110411
  Serious: Yes (Hospitalization)
  Sender: FDA-Public Use
  Company Number: CA-JNJFOC-20101007260

PATIENT
  Sex: Male
  Weight: 99.3 kg

DRUGS (2)
  1. REMICADE [Suspect]
     Indication: PRODUCT USED FOR UNKNOWN INDICATION
     Route: 042
  2. REMICADE [Suspect]
     Route: 042

REACTIONS (4)
  - ABDOMINAL PAIN [None]
  - CHILLS [None]
  - NAUSEA [None]
  - VOMITING [None]
